FAERS Safety Report 5008781-3 (Version None)
Quarter: 2006Q2

REPORT INFORMATION
  Report Type: 
  Country: None (occurrence: None)
  Receive Date: 20060518
  Receipt Date: 20060504
  Transmission Date: 20061013
  Serious: Yes (Other)
  Sender: FDA-Public Use
  Company Number: 2006-074

PATIENT
  Sex: Female

DRUGS (2)
  1. CARBOPLATIN [Suspect]
     Indication: OVARIAN CANCER
     Dosage: 500MG INTRAVENOUS
     Route: 042
     Dates: start: 20060223, end: 20060223
  2. GEMCITABINE [Concomitant]

REACTIONS (5)
  - ANXIETY [None]
  - BURNING SENSATION [None]
  - HYPERHIDROSIS [None]
  - PRURITUS [None]
  - VOMITING [None]
